FAERS Safety Report 8486152-5 (Version None)
Quarter: 2012Q3

REPORT INFORMATION
  Report Type: 
  Country: None (occurrence: None)
  Receive Date: 20120703
  Receipt Date: 20120702
  Transmission Date: 20120928
  Serious: Yes (Other)
  Sender: FDA-Public Use
  Company Number: US-ROXANE LABORATORIES, INC.-2012-RO-01295RO

PATIENT
  Sex: Male

DRUGS (2)
  1. VITAMIN D [Concomitant]
     Indication: SUPPLEMENTATION THERAPY
     Route: 048
  2. LEVETIRACETAM [Suspect]
     Indication: CONVULSION
     Route: 048

REACTIONS (1)
  - CONVULSION [None]
